FAERS Safety Report 9829284 (Version 1)
Quarter: 2014Q1

REPORT INFORMATION
  Report Type: Spontaneous
  Country: US (occurrence: US)
  Receive Date: 20140120
  Receipt Date: 20140120
  Transmission Date: 20141002
  Serious: Yes (Hospitalization)
  Sender: FDA-Public Use
  Company Number: US-009507513-1401USA006641

PATIENT
  Sex: Male

DRUGS (1)
  1. VYTORIN [Suspect]
     Indication: BLOOD CHOLESTEROL ABNORMAL
     Route: 064

REACTIONS (4)
  - Pneumonia [Recovered/Resolved]
  - Tachycardia foetal [Unknown]
  - Birth trauma [Unknown]
  - Foetal exposure during pregnancy [Recovered/Resolved]
